FAERS Safety Report 15775218 (Version 2)
Quarter: 2020Q2

REPORT INFORMATION
  Report Type: Report from Study
  Country: DE (occurrence: DE)
  Receive Date: 20181231
  Receipt Date: 20200519
  Transmission Date: 20200713
  Serious: Yes (Death, Other)
  Sender: FDA-Public Use
  Company Number: DE-ACCORD-098772

PATIENT
  Age: 58 Year
  Sex: Male

DRUGS (4)
  1. PACLITAXEL. [Suspect]
     Active Substance: PACLITAXEL
     Indication: PRODUCT USED FOR UNKNOWN INDICATION
     Dosage: 300 MG MILLIGRAM(S) EVERY 28 DAY,260?MG?MILLIGRAM(S)?EVERY?WEEK ,
     Route: 041
     Dates: start: 20160226, end: 20160304
  2. GEMCITABINE/GEMCITABINE HYDROCHLORIDE [Suspect]
     Active Substance: GEMCITABINE\GEMCITABINE HYDROCHLORIDE
     Indication: PANCREATIC CARCINOMA
     Dosage: DAILY?DOSE:?6300?MG?MILLIGRAM(S)?EVERY?28?DAY
     Route: 065
     Dates: start: 20151111, end: 20160304
  3. PACLITAXEL. [Suspect]
     Active Substance: PACLITAXEL
     Indication: PRODUCT USED FOR UNKNOWN INDICATION
     Dosage: DAILY DOSE: 260 MG MILLIGRAM(S) EVERY WEEK
     Route: 041
     Dates: start: 20160113, end: 20160127
  4. PACLITAXEL. [Suspect]
     Active Substance: PACLITAXEL
     Indication: PANCREATIC CARCINOMA METASTATIC
     Dosage: DAILY DOSE: 780 MG MILLIGRAM(S) EVERY 28 DAY
     Route: 041
     Dates: start: 20151111, end: 20160219

REACTIONS (2)
  - Neuropathy peripheral [Not Recovered/Not Resolved]
  - Pancreatic carcinoma metastatic [Fatal]

NARRATIVE: CASE EVENT DATE: 20151230
